FAERS Safety Report 24901561 (Version 1)
Quarter: 2025Q1

REPORT INFORMATION
  Report Type: Spontaneous
  Country: US (occurrence: US)
  Receive Date: 20250129
  Receipt Date: 20250129
  Transmission Date: 20250409
  Serious: No
  Sender: SANOFI AVENTIS
  Company Number: US-SA-2025SA026297

PATIENT
  Age: 35 Year
  Sex: Male
  Weight: 77.11 kg

DRUGS (5)
  1. DUPIXENT [Suspect]
     Active Substance: DUPILUMAB
     Indication: Dermatitis atopic
     Dosage: 300 MG, QOW
     Route: 058
     Dates: end: 202412
  2. ZORYVE [Concomitant]
     Active Substance: ROFLUMILAST
  3. EBGLYSS [Concomitant]
     Active Substance: LEBRIKIZUMAB-LBKZ
  4. METHYLPREDNISOLONE [Concomitant]
     Active Substance: METHYLPREDNISOLONE
  5. LANTUS SOLOSTAR [Concomitant]
     Active Substance: INSULIN GLARGINE

REACTIONS (3)
  - Skin irritation [Not Recovered/Not Resolved]
  - Pruritus [Not Recovered/Not Resolved]
  - Drug ineffective [Unknown]

NARRATIVE: CASE EVENT DATE: 20241201
